FAERS Safety Report 24064262 (Version 1)
Quarter: 2024Q3

REPORT INFORMATION
  Report Type: Spontaneous
  Country: GB (occurrence: GB)
  Receive Date: 20240709
  Receipt Date: 20240709
  Transmission Date: 20241017
  Serious: Yes (Hospitalization, Other)
  Sender: ASTELLAS
  Company Number: GB-ROCHE-10000011845

PATIENT
  Age: 40 Year
  Sex: Male
  Weight: 65 kg

DRUGS (1)
  1. ERLOTINIB [Suspect]
     Active Substance: ERLOTINIB
     Indication: Product used for unknown indication
     Dosage: UNK UNK, UNKNOWN FREQ.
     Route: 065

REACTIONS (10)
  - Abdominal discomfort [Unknown]
  - Anaemia [Unknown]
  - Gastrooesophageal reflux disease [Unknown]
  - Hepatic cancer [Unknown]
  - Pancreatic duct obstruction [Unknown]
  - Deep vein thrombosis [Unknown]
  - Rectal haemorrhage [Unknown]
  - Dry skin [Unknown]
  - Vomiting [Unknown]
  - Nausea [Unknown]

NARRATIVE: CASE EVENT DATE: 20100331
